FAERS Safety Report 8794181 (Version 2)
Quarter: 2013Q1

REPORT INFORMATION
  Report Type: Spontaneous
  Country: US (occurrence: US)
  Receive Date: 20120918
  Receipt Date: 20130117
  Transmission Date: 20140127
  Serious: No
  Sender: FDA-Public Use
  Company Number: US-BIOGENIDEC-2012BI037352

PATIENT
  Age: 63 Year
  Sex: Female

DRUGS (2)
  1. AVONEX [Suspect]
     Indication: MULTIPLE SCLEROSIS
     Route: 030
     Dates: start: 19990701, end: 2004
  2. AVONEX [Suspect]
     Indication: MULTIPLE SCLEROSIS
     Route: 030
     Dates: start: 2004, end: 20130101

REACTIONS (4)
  - Swollen tongue [Recovered/Resolved with Sequelae]
  - Dysphagia [Recovered/Resolved]
  - Swelling face [Recovered/Resolved with Sequelae]
  - Lip swelling [Recovered/Resolved with Sequelae]
